FAERS Safety Report 6115418-9 (Version None)
Quarter: 2009Q1

REPORT INFORMATION
  Report Type: 
  Country: None (occurrence: None)
  Receive Date: 20090313
  Receipt Date: 20090304
  Transmission Date: 20090719
  Serious: Yes (Hospitalization, Disabling)
  Sender: FDA-Public Use
  Company Number: FR-AVENTIS-200910875FR

PATIENT
  Age: 85 Year
  Sex: Female

DRUGS (8)
  1. ARAVA [Suspect]
     Route: 048
  2. AMIODARONE HCL [Concomitant]
     Route: 048
  3. LEVOTHYROXINE SODIUM [Concomitant]
     Route: 048
  4. CASODEX [Concomitant]
     Route: 048
  5. LASIX [Concomitant]
     Route: 048
  6. KARDEGIC                           /00002703/ [Concomitant]
     Route: 048
  7. REPAGLINIDE [Concomitant]
     Route: 048
  8. FORLAX [Concomitant]
     Route: 048

REACTIONS (4)
  - ASTHENIA [None]
  - BEDRIDDEN [None]
  - GENERAL PHYSICAL HEALTH DETERIORATION [None]
  - INTENTIONAL DRUG MISUSE [None]
